FAERS Safety Report 5375008-2 (Version None)
Quarter: 2007Q2

REPORT INFORMATION
  Report Type: 
  Country: None (occurrence: None)
  Receive Date: 20070629
  Receipt Date: 20070410
  Transmission Date: 20071010
  Serious: No
  Sender: FDA-Public Use
  Company Number: A0645780A

PATIENT
  Sex: Male

DRUGS (3)
  1. FLOVENT [Suspect]
     Indication: ASTHMA
     Dosage: 220MCG TWICE PER DAY
     Route: 055
  2. ALBUTEROL [Suspect]
     Indication: ASTHMA
     Route: 065
  3. NO CONCURRENT MEDICATION [Concomitant]

REACTIONS (9)
  - ANXIETY [None]
  - BREATH ODOUR [None]
  - DRY MOUTH [None]
  - DYSGEUSIA [None]
  - DYSPHONIA [None]
  - LACRIMATION INCREASED [None]
  - NASAL CONGESTION [None]
  - NERVOUSNESS [None]
  - OCULAR HYPERAEMIA [None]
